FAERS Safety Report 13607997 (Version 1)
Quarter: 2017Q2

REPORT INFORMATION
  Report Type: Spontaneous
  Country: GB (occurrence: GB)
  Receive Date: 20170602
  Receipt Date: 20170602
  Transmission Date: 20170830
  Serious: Yes (Hospitalization)
  Sender: FDA-Public Use
  Company Number: GB-PFIZER INC-2017238743

PATIENT
  Age: 15 Year
  Sex: Male

DRUGS (16)
  1. EPANUTIN [Suspect]
     Active Substance: PHENYTOIN SODIUM
     Indication: EPILEPSY
     Dosage: UNK
     Route: 048
     Dates: start: 1977, end: 1982
  2. CITALOPRAM [Concomitant]
     Active Substance: CITALOPRAM HYDROBROMIDE
     Dosage: UNK
  3. LANSOPRAZOL [Concomitant]
     Active Substance: LANSOPRAZOLE
     Dosage: UNK
  4. PRED FORTE [Concomitant]
     Active Substance: PREDNISOLONE ACETATE
     Dosage: UNK
  5. EPILIM [Suspect]
     Active Substance: VALPROATE SODIUM
     Indication: GENERALISED TONIC-CLONIC SEIZURE
     Dosage: UNK
     Route: 048
     Dates: start: 1976, end: 1982
  6. METHOTREXATE. [Concomitant]
     Active Substance: METHOTREXATE
     Dosage: UNK
  7. XARELTO [Concomitant]
     Active Substance: RIVAROXABAN
     Dosage: UNK
  8. TERBINAFINE. [Concomitant]
     Active Substance: TERBINAFINE
     Dosage: UNK
  9. E45 ITCH RELIEF [Concomitant]
     Dosage: UNK
  10. MYDRILATE [Concomitant]
     Active Substance: CYCLOPENTOLATE HYDROCHLORIDE
     Dosage: UNK
  11. FOLIC ACID. [Concomitant]
     Active Substance: FOLIC ACID
     Dosage: UNK
  12. BISOPROLOL [Concomitant]
     Active Substance: BISOPROLOL
     Dosage: UNK
  13. DIHYDROCODEINE [Concomitant]
     Active Substance: DIHYDROCODEINE
     Dosage: UNK
  14. LORATADINE. [Concomitant]
     Active Substance: LORATADINE
     Dosage: UNK
  15. GLYCERYL TRINITRATE [Concomitant]
     Active Substance: NITROGLYCERIN
     Dosage: UNK
  16. SIMVASTATIN. [Concomitant]
     Active Substance: SIMVASTATIN
     Dosage: UNK

REACTIONS (7)
  - Nausea [Recovered/Resolved]
  - Amnesia [Recovered/Resolved]
  - Lethargy [Recovered/Resolved]
  - Loss of consciousness [Recovered/Resolved]
  - Medication error [Unknown]
  - Dizziness [Recovered/Resolved]
  - Vomiting [Recovered/Resolved]
